FAERS Safety Report 14441671 (Version 2)
Quarter: 2018Q1

REPORT INFORMATION
  Report Type: Spontaneous
  Country: US (occurrence: US)
  Receive Date: 20180125
  Receipt Date: 20180326
  Transmission Date: 20180509
  Serious: No
  Sender: FDA-Public Use
  Company Number: US-LUNDBECK-DKLU2042678

PATIENT
  Age: 36 Year
  Sex: Female

DRUGS (4)
  1. NORTHERA [Suspect]
     Active Substance: DROXIDOPA
     Indication: AUTONOMIC NEUROPATHY
     Dosage: SCHEDULE B / TITRATING
     Route: 048
     Dates: start: 201701
  2. NORTHERA [Suspect]
     Active Substance: DROXIDOPA
     Route: 065
  3. NORTHERA [Suspect]
     Active Substance: DROXIDOPA
     Dosage: SCHEDULE C / TITRATING
     Route: 065
  4. NORTHERA [Suspect]
     Active Substance: DROXIDOPA
     Indication: EHLERS-DANLOS SYNDROME
     Dosage: SCHEDULE B
     Route: 048
     Dates: start: 201801

REACTIONS (6)
  - Incorrect dose administered [Unknown]
  - Hypersomnia [Unknown]
  - Vomiting [Unknown]
  - Headache [Unknown]
  - Drug titration error [Unknown]
  - Food poisoning [Unknown]

NARRATIVE: CASE EVENT DATE: 20180104
